FAERS Safety Report 13166172 (Version 1)
Quarter: 2017Q1

REPORT INFORMATION
  Report Type: Report from Study
  Country: US (occurrence: US)
  Receive Date: 20170131
  Receipt Date: 20170131
  Transmission Date: 20170428
  Serious: Yes (Hospitalization)
  Sender: FDA-Public Use
  Company Number: US-ROCHE-1885660

PATIENT
  Sex: Female
  Weight: 74.46 kg

DRUGS (9)
  1. PULMOZYME [Suspect]
     Active Substance: DORNASE ALFA
     Indication: CYSTIC FIBROSIS
     Dosage: ONGOING: NO
     Route: 055
     Dates: start: 2013
  2. GLUCOPHAGE [Concomitant]
     Active Substance: METFORMIN HYDROCHLORIDE
     Dosage: ONGOING: YES
     Route: 065
  3. PRILOSEC [Concomitant]
     Active Substance: OMEPRAZOLE MAGNESIUM
     Dosage: ONGOING:YES
     Route: 065
  4. ALBUTEROL INHALATION SOLUTION [Concomitant]
     Active Substance: ALBUTEROL
     Dosage: ONGOING :YES
     Route: 065
  5. PULMOZYME [Suspect]
     Active Substance: DORNASE ALFA
     Dosage: ONGOING: YES
     Route: 055
  6. WELLBUTRIN [Concomitant]
     Active Substance: BUPROPION HYDROCHLORIDE
     Dosage: ONGOING: YES
     Route: 065
  7. TOBRAMYCIN INHALATION [Concomitant]
     Dosage: ONGOING: YES
     Route: 065
  8. LISINOPRIL. [Concomitant]
     Active Substance: LISINOPRIL
     Dosage: ONGOING: YES
     Route: 065
  9. CARVEDIL [Concomitant]
     Active Substance: CARVEDILOL
     Dosage: ONGOING :YES
     Route: 065

REACTIONS (8)
  - Productive cough [Unknown]
  - Asthma [Unknown]
  - Asthenia [Unknown]
  - Confusional state [Unknown]
  - Cough [Unknown]
  - Oxygen saturation decreased [Unknown]
  - Constipation [Unknown]
  - Haemoptysis [Unknown]
